FAERS Safety Report 21206849 (Version 2)
Quarter: 2022Q4

REPORT INFORMATION
  Report Type: Spontaneous
  Country: BR (occurrence: BR)
  Receive Date: 20220812
  Receipt Date: 20221226
  Transmission Date: 20230113
  Serious: Yes (Hospitalization, Other)
  Sender: FDA-Public Use
  Company Number: BR-GLAXOSMITHKLINE-BR2022AMR117465

PATIENT

DRUGS (1)
  1. BENLYSTA [Suspect]
     Active Substance: BELIMUMAB
     Indication: Systemic lupus erythematosus
     Dosage: UNK
     Dates: start: 20141013

REACTIONS (5)
  - Complication of pregnancy [Unknown]
  - Abortion spontaneous [Unknown]
  - Haemorrhage in pregnancy [Unknown]
  - Exposure during pregnancy [Unknown]
  - Product dose omission issue [Unknown]
